FAERS Safety Report 6784370-5 (Version None)
Quarter: 2010Q2

REPORT INFORMATION
  Report Type: 
  Country: None (occurrence: None)
  Receive Date: 20100617
  Receipt Date: 20100607
  Transmission Date: 20101027
  Serious: Yes (Hospitalization)
  Sender: FDA-Public Use
  Company Number: 8049076

PATIENT
  Sex: Female
  Weight: 89.1 kg

DRUGS (7)
  1. CERTOLIZUMAB PEGOL [Suspect]
     Indication: RHEUMATOID ARTHRITIS
     Dosage: (400 MG,  NR OF DOSES :3 SUBCUTANEOUS), (200 MG, - NR OF DOSES :10 SUBCUTANEOUS), (SUBCUTANEOUS)
     Route: 058
     Dates: start: 20081215, end: 20090112
  2. CERTOLIZUMAB PEGOL [Suspect]
     Indication: RHEUMATOID ARTHRITIS
     Dosage: (400 MG,  NR OF DOSES :3 SUBCUTANEOUS), (200 MG, - NR OF DOSES :10 SUBCUTANEOUS), (SUBCUTANEOUS)
     Route: 058
     Dates: start: 20090126, end: 20090716
  3. CERTOLIZUMAB PEGOL [Suspect]
     Indication: RHEUMATOID ARTHRITIS
     Dosage: (400 MG,  NR OF DOSES :3 SUBCUTANEOUS), (200 MG, - NR OF DOSES :10 SUBCUTANEOUS), (SUBCUTANEOUS)
     Route: 058
     Dates: start: 20090729
  4. METHOTREXATE [Concomitant]
  5. PREDNISONE [Concomitant]
  6. FOLIC ACID [Concomitant]
  7. ACTONEL [Concomitant]

REACTIONS (11)
  - BLOOD CALCIUM DECREASED [None]
  - BLOOD GLUCOSE INCREASED [None]
  - DIVERTICULITIS [None]
  - HEART RATE INCREASED [None]
  - HEPATIC LESION [None]
  - LIPASE INCREASED [None]
  - NAUSEA [None]
  - RENAL CYST [None]
  - RESPIRATORY RATE INCREASED [None]
  - SPINAL OSTEOARTHRITIS [None]
  - VOMITING [None]
